FAERS Safety Report 21544529 (Version 1)
Quarter: 2022Q4

REPORT INFORMATION
  Report Type: Spontaneous
  Country: GB (occurrence: GB)
  Receive Date: 20221102
  Receipt Date: 20221102
  Transmission Date: 20230113
  Serious: Yes (Other)
  Sender: FDA-Public Use
  Company Number: GB-MHRA-MED-202210181357338390-GPCLN

PATIENT
  Sex: Female

DRUGS (2)
  1. ISOTRETINOIN [Suspect]
     Active Substance: ISOTRETINOIN
     Indication: Product used for unknown indication
     Dosage: UNK
     Route: 065
  2. RISEDRONATE SODIUM [Concomitant]
     Active Substance: RISEDRONATE SODIUM
     Indication: Osteoporosis
     Dosage: 35 MILLIGRAM, QW
     Route: 065
     Dates: start: 20200114

REACTIONS (4)
  - Anti-Muellerian hormone level decreased [Unknown]
  - Osteoporosis [Not Recovered/Not Resolved]
  - Loss of libido [Unknown]
  - Sexual dysfunction [Not Recovered/Not Resolved]
